FAERS Safety Report 7309389-7 (Version None)
Quarter: 2011Q1

REPORT INFORMATION
  Report Type: 
  Country: None (occurrence: None)
  Receive Date: 20110223
  Receipt Date: 20110218
  Transmission Date: 20110831
  Serious: Yes (Other)
  Sender: FDA-Public Use
  Company Number: US-AMGEN-USASP2011009921

PATIENT
  Sex: Female

DRUGS (4)
  1. CORTICOSTEROIDS [Concomitant]
  2. NPLATE [Suspect]
     Indication: IDIOPATHIC THROMBOCYTOPENIC PURPURA
     Dosage: 200 A?G, UNK
     Dates: start: 20100113, end: 20100205
  3. RITUXIMAB [Concomitant]
  4. IMMUNOGLOBULINS [Concomitant]

REACTIONS (1)
  - PLATELET COUNT INCREASED [None]
